FAERS Safety Report 10023914 (Version 1)
Quarter: 2014Q1

REPORT INFORMATION
  Report Type: Spontaneous
  Country: US (occurrence: US)
  Receive Date: 20140320
  Receipt Date: 20140320
  Transmission Date: 20141002
  Serious: No
  Sender: FDA-Public Use
  Company Number: US-B.I. PHARMACEUTICALS,INC./RIDGEFIELD-2014-BI-10835BP

PATIENT
  Age: 82 Year
  Sex: Female

DRUGS (1)
  1. ZANTAC COOL MINT (TABLETS) [Suspect]
     Indication: GASTROOESOPHAGEAL REFLUX DISEASE
     Dosage: 150 MG
     Route: 048
     Dates: start: 201402

REACTIONS (1)
  - Off label use [Not Recovered/Not Resolved]
